FAERS Safety Report 6715843-9 (Version None)
Quarter: 2010Q2

REPORT INFORMATION
  Report Type: 
  Country: None (occurrence: None)
  Receive Date: 20100507
  Receipt Date: 20100428
  Transmission Date: 20101027
  Serious: Yes (Hospitalization)
  Sender: FDA-Public Use
  Company Number: ES-JNJFOC-20100500231

PATIENT
  Age: 30 Year
  Sex: Male

DRUGS (4)
  1. RISPERIDONE [Suspect]
     Indication: PSYCHOTIC DISORDER
     Route: 065
  2. RISPERIDONE [Suspect]
     Route: 065
  3. OLANZAPINE [Suspect]
     Indication: PSYCHOTIC DISORDER
     Route: 065
  4. BUPROPION HCL [Concomitant]
     Indication: DRUG USE FOR UNKNOWN INDICATION
     Route: 065

REACTIONS (4)
  - ANXIETY [None]
  - CYCLOTHYMIC DISORDER [None]
  - HYPOAESTHESIA [None]
  - OEDEMA PERIPHERAL [None]
